FAERS Safety Report 21841454 (Version 1)
Quarter: 2023Q1

REPORT INFORMATION
  Report Type: Spontaneous
  Country: US (occurrence: None)
  Receive Date: 20230109
  Receipt Date: 20230109
  Transmission Date: 20230417
  Serious: Yes (Death)
  Sender: FDA-Public Use
  Company Number: None

PATIENT
  Age: 82 Year
  Sex: Male
  Weight: 103.01 kg

DRUGS (24)
  1. ABIRATERONE [Suspect]
     Active Substance: ABIRATERONE
     Indication: Prostate cancer
     Dosage: FREQUENCY : DAILY;?
     Route: 048
  2. ALLEGRA [Concomitant]
  3. AMOXICILLIN [Concomitant]
     Active Substance: AMOXICILLIN
  4. MELATONIN [Concomitant]
     Active Substance: MELATONIN
  5. ELIGARD [Concomitant]
  6. ENOXAPARIN [Concomitant]
  7. FLUCONAZOLE [Concomitant]
  8. VITAMIN E [Concomitant]
  9. ISOSORBIDE [Concomitant]
  10. LEVEMIR [Concomitant]
  11. MAGNESIUM [Concomitant]
     Active Substance: MAGNESIUM
  12. METOPROLOL [Concomitant]
  13. MS CONTIN [Concomitant]
  14. NITROGLYCERIN [Concomitant]
  15. NOVOLOG [Concomitant]
  16. ONDANSETRON [Concomitant]
  17. OXYCODONE [Concomitant]
  18. POTASSIUM CHLORIDE [Concomitant]
  19. PREDNISONE [Concomitant]
  20. SODIUM CHLORIDE [Concomitant]
  21. TOBRADEX [Concomitant]
  22. TYLENOL [Concomitant]
     Active Substance: ACETAMINOPHEN
  23. VITAMIN E [Concomitant]
     Active Substance: .ALPHA.-TOCOPHEROL
  24. WARFARIN [Concomitant]
     Active Substance: WARFARIN

REACTIONS (1)
  - Death [None]

NARRATIVE: CASE EVENT DATE: 20230107
